FAERS Safety Report 7899088-5 (Version None)
Quarter: 2011Q4

REPORT INFORMATION
  Report Type: 
  Country: None (occurrence: None)
  Receive Date: 20111107
  Receipt Date: 20111028
  Transmission Date: 20120403
  Serious: Yes (Other)
  Sender: FDA-Public Use
  Company Number: GB-GILEAD-2011-0046353

PATIENT
  Sex: Male

DRUGS (1)
  1. BLINDED EFAVIRENZ/EMTRICITABINE/TENOFOVIR DISOPROXIL FUMARATE [Suspect]
     Indication: HIV INFECTION
     Dosage: 1 DF, QD
     Route: 048
     Dates: start: 20110329, end: 20110818

REACTIONS (3)
  - NEUROTOXICITY [None]
  - DISCOMFORT [None]
  - LOSS OF CONSCIOUSNESS [None]
